FAERS Safety Report 5818184-7 (Version None)
Quarter: 2008Q3

REPORT INFORMATION
  Report Type: 
  Country: None (occurrence: None)
  Receive Date: 20080722
  Receipt Date: 20071105
  Transmission Date: 20090109
  Serious: No
  Sender: FDA-Public Use
  Company Number: US-BAYER-US-2007-041985

PATIENT
  Age: 70 Year
  Weight: 86 kg

DRUGS (2)
  1. MAGNEVIST [Suspect]
     Indication: NUCLEAR MAGNETIC RESONANCE IMAGING
     Dosage: UNIT DOSE: 20 ML
     Route: 042
     Dates: start: 20071013, end: 20071013
  2. MAGNEVIST [Suspect]
     Dosage: UNIT DOSE: 20 ML
     Route: 042
     Dates: start: 20071019, end: 20071019

REACTIONS (4)
  - BURNING SENSATION [None]
  - NAUSEA [None]
  - RETCHING [None]
  - SALIVARY HYPERSECRETION [None]
